FAERS Safety Report 8894968 (Version 1)
Quarter: 2012Q4

REPORT INFORMATION
  Report Type: 
  Country: MX (occurrence: MX)
  Receive Date: 20121108
  Receipt Date: 20121108
  Transmission Date: 20130627
  Serious: Yes (Other)
  Sender: FDA-Public Use
  Company Number: PHHY2012MX102259

PATIENT
  Age: 61 Year
  Sex: Female

DRUGS (8)
  1. ONBREZ [Suspect]
     Indication: CHRONIC OBSTRUCTIVE PULMONARY DISEASE
     Dosage: 1 DF, QD
  2. ONBREZ [Suspect]
     Dosage: 1 DF, every 3 days
  3. METOPROLOL [Concomitant]
     Dosage: 0.25 DF, BID
  4. LOSARTAN [Concomitant]
     Dosage: 0.5 DF, BID
  5. COMBIVENT [Concomitant]
     Indication: LUNG DISORDER
     Dosage: 1 DF, QD
     Dates: start: 2010
  6. SERETIDE [Concomitant]
     Indication: LUNG DISORDER
     Dosage: 2 DF, QD
     Dates: start: 2012
  7. AVANIS [Concomitant]
     Dosage: 2 DF, QD
     Dates: start: 2011
  8. LEVOTHYROXINE SODIUM [Concomitant]
     Dosage: 1 DF, QD
     Dates: start: 201209

REACTIONS (3)
  - Thyroid cancer [Not Recovered/Not Resolved]
  - Gallbladder disorder [Not Recovered/Not Resolved]
  - Headache [Not Recovered/Not Resolved]
